FAERS Safety Report 8794292 (Version 1)
Quarter: 2012Q4

REPORT INFORMATION
  Report Type: 
  Country: US (occurrence: US)
  Receive Date: 20120917
  Receipt Date: 20120917
  Transmission Date: 20130627
  Serious: Yes (Other)
  Sender: FDA-Public Use
  Company Number: PHEH2012US017806

PATIENT
  Sex: Male

DRUGS (21)
  1. RECLAST [Suspect]
     Indication: OSTEOPOROSIS
     Route: 042
     Dates: start: 200711
  2. RECLAST [Suspect]
     Route: 042
     Dates: start: 2008
  3. RECLAST [Suspect]
     Route: 042
     Dates: start: 2009
  4. PRANDIN [Concomitant]
     Indication: DIABETES MELLITUS
     Dosage: 1 DF, daily
     Route: 048
  5. JANUVIA [Concomitant]
     Indication: DIABETES MELLITUS
     Dosage: 50 mg, daily
     Route: 048
  6. COREG [Concomitant]
     Indication: CARDIAC DISORDER
     Dosage: 12.5 mg, BID
     Route: 048
  7. ZOCOR [Concomitant]
     Dosage: 20 mg, QD
     Route: 048
  8. HYDROCHLOROTHIAZIDE [Concomitant]
     Dosage: 12.5 mg, QD
     Route: 048
  9. PRILOSEC [Concomitant]
     Indication: GASTROOESOPHAGEAL REFLUX DISEASE
     Dosage: 40 mg, QD
     Route: 048
  10. PERCOCET [Concomitant]
     Indication: PAIN
     Dosage: 7.5/325 mg, four a day
     Route: 048
  11. DIGOXIN [Concomitant]
     Indication: CARDIAC FIBRILLATION
     Dosage: 125 ug, QD
     Route: 048
  12. DABIGATRAN [Concomitant]
     Indication: BLOOD DISORDER
     Dosage: 150 mg, BID
     Route: 048
  13. SOMA [Concomitant]
     Indication: MUSCLE DISORDER
     Dosage: 350 mg, BID
     Route: 048
  14. CENTRUM SILVER [Concomitant]
     Dosage: 1 DF, QD
     Route: 048
  15. VITAMIN C [Concomitant]
     Dosage: 500 mg, QD
     Route: 047
  16. VITAMIN D [Concomitant]
     Dosage: 1000 IU, QD
     Route: 048
  17. VITAMIN E [Concomitant]
     Dosage: 400 mg, QD
     Route: 048
  18. VITAMIN B12 [Concomitant]
     Dosage: 3000 ug, QD
     Route: 048
  19. MAGNESIUM [Concomitant]
     Dosage: 143 mg, QD
     Route: 048
  20. CALCIUM [Concomitant]
     Dosage: 1200 mg, QD
     Route: 048
  21. IRON [Concomitant]
     Dosage: 1 DF, QD
     Route: 048

REACTIONS (3)
  - Spinal compression fracture [Unknown]
  - Jaw disorder [Unknown]
  - Pain in jaw [Unknown]
